FAERS Safety Report 4883441-8 (Version None)
Quarter: 2006Q1

REPORT INFORMATION
  Report Type: 
  Country: None (occurrence: None)
  Receive Date: 20060118
  Receipt Date: 20060112
  Transmission Date: 20060701
  Serious: Yes (Other)
  Sender: FDA-Public Use
  Company Number: 2006AP00260

PATIENT
  Age: 70 Year
  Sex: Male

DRUGS (6)
  1. IRESSA [Suspect]
     Indication: LUNG ADENOCARCINOMA
     Route: 048
     Dates: start: 20051121, end: 20060111
  2. MAGNESIUM OXIDE [Concomitant]
     Route: 048
  3. ALLOID G [Concomitant]
     Route: 048
  4. HACHIAZULE [Concomitant]
  5. LENDORMIN [Concomitant]
     Route: 048
  6. LOXONIN [Concomitant]

REACTIONS (3)
  - ALANINE AMINOTRANSFERASE INCREASED [None]
  - ASPARTATE AMINOTRANSFERASE INCREASED [None]
  - HEPATIC FUNCTION ABNORMAL [None]
